FAERS Safety Report 13660134 (Version 1)
Quarter: 2017Q2

REPORT INFORMATION
  Report Type: Spontaneous
  Country: US (occurrence: US)
  Receive Date: 20170615
  Receipt Date: 20170615
  Transmission Date: 20170830
  Serious: Yes (Other)
  Sender: FDA-Public Use
  Company Number: None

PATIENT
  Age: 54 Year
  Sex: Female
  Weight: 107.7 kg

DRUGS (9)
  1. ZOLPIDEM [Concomitant]
     Active Substance: ZOLPIDEM\ZOLPIDEM TARTRATE
  2. POSACONAZOLE DELAYED RELEASE [Concomitant]
  3. VANCOMYCIN [Concomitant]
     Active Substance: VANCOMYCIN
  4. ACYCLOVIR. [Concomitant]
     Active Substance: ACYCLOVIR
  5. LEVOFLOXACIN. [Concomitant]
     Active Substance: LEVOFLOXACIN
  6. DECITABINE. [Suspect]
     Active Substance: DECITABINE
     Indication: NEOPLASM RECURRENCE
     Dosage: 45MG/DAY X5D THEN 2 DAYS THEN X5D EVERY 6 WEEKS INTRAVENOUS
     Route: 042
     Dates: start: 20170510, end: 20170514
  7. ATENOLOL. [Concomitant]
     Active Substance: ATENOLOL
  8. PEMBROLIZUMAB 200 MG [Suspect]
     Active Substance: PEMBROLIZUMAB
     Indication: NEOPLASM RECURRENCE
     Dosage: 200 MG EVERY 21 DAYS INTRAVENOUS
     Route: 042
     Dates: start: 20170505
  9. BACTRIM [Concomitant]
     Active Substance: SULFAMETHOXAZOLE\TRIMETHOPRIM

REACTIONS (4)
  - Hypokalaemia [None]
  - Hypophosphataemia [None]
  - Hyperuricaemia [None]
  - Diabetes insipidus [None]

NARRATIVE: CASE EVENT DATE: 20170614
